FAERS Safety Report 10178379 (Version 1)
Quarter: 2014Q2

REPORT INFORMATION
  Report Type: Spontaneous
  Country: US (occurrence: None)
  Receive Date: 20140516
  Receipt Date: 20140516
  Transmission Date: 20141212
  Serious: No
  Sender: FDA-Public Use
  Company Number: None

PATIENT
  Age: 46 Year
  Sex: Female

DRUGS (1)
  1. HUMIRA 40MG ABBVIE [Suspect]
     Indication: RHEUMATOID ARTHRITIS
     Dosage: 40MG  Q2 WEEKS  SQ
     Route: 058
     Dates: start: 20140507, end: 20140511

REACTIONS (1)
  - Anaphylactic reaction [None]
